FAERS Safety Report 8508326-7 (Version None)
Quarter: 2012Q3

REPORT INFORMATION
  Report Type: 
  Country: None (occurrence: None)
  Receive Date: 20120713
  Receipt Date: 20120704
  Transmission Date: 20120928
  Serious: Yes (Other)
  Sender: FDA-Public Use
  Company Number: FR-JNJFOC-20120702899

PATIENT
  Sex: Male

DRUGS (1)
  1. REMICADE [Suspect]
     Indication: ERYTHRODERMIC PSORIASIS
     Route: 042
     Dates: start: 20120101

REACTIONS (3)
  - PARADOXICAL DRUG REACTION [None]
  - ARTHRITIS [None]
  - ANTINUCLEAR ANTIBODY POSITIVE [None]
